FAERS Safety Report 8890593 (Version 1)
Quarter: 2012Q4

REPORT INFORMATION
  Report Type: Report from Study
  Country: CA (occurrence: CA)
  Receive Date: 20121107
  Receipt Date: 20121107
  Transmission Date: 20130627
  Serious: Yes (Other)
  Sender: FDA-Public Use
  Company Number: CA-ROCHE-1150354

PATIENT
  Sex: Female

DRUGS (6)
  1. VEMURAFENIB [Suspect]
     Indication: METASTATIC MALIGNANT MELANOMA
     Route: 048
     Dates: start: 20111006
  2. COVERSYL [Concomitant]
     Indication: HYPERTENSION
     Route: 065
  3. PAROXETINE [Concomitant]
     Indication: DEPRESSION
     Route: 065
  4. TEVA-RABEPRAZOLE [Concomitant]
     Indication: DYSPEPSIA
     Route: 065
  5. ROSUVASTATIN [Concomitant]
     Route: 065
  6. ALEVE [Concomitant]
     Indication: PAIN
     Route: 065

REACTIONS (10)
  - Mass [Unknown]
  - Diarrhoea [Recovered/Resolved]
  - Constipation [Recovered/Resolved]
  - Sunburn [Recovered/Resolved]
  - Weight decreased [Recovered/Resolved]
  - Alopecia [Recovered/Resolved]
  - Pruritus [Recovered/Resolved]
  - Erythema [Recovered/Resolved]
  - Toothache [Not Recovered/Not Resolved]
  - Skin exfoliation [Recovered/Resolved]
